FAERS Safety Report 11754113 (Version 1)
Quarter: 2015Q4

REPORT INFORMATION
  Report Type: Spontaneous
  Country: JP (occurrence: JP)
  Receive Date: 20151119
  Receipt Date: 20151119
  Transmission Date: 20160304
  Serious: Yes (Death, Hospitalization, Other)
  Sender: FDA-Public Use
  Company Number: JP-SA-2015SA118493

PATIENT
  Age: 64 Year
  Sex: Male
  Weight: 67 kg

DRUGS (16)
  1. ELPLAT [Suspect]
     Active Substance: OXALIPLATIN
     Indication: PANCREATIC CARCINOMA
     Dosage: INFUSION
     Route: 041
     Dates: start: 20140704, end: 20140704
  2. LEVOFOLINATE [Suspect]
     Active Substance: LEVOLEUCOVORIN CALCIUM
     Indication: PANCREATIC CARCINOMA
     Dosage: INFUSION
     Route: 041
     Dates: start: 20140508, end: 20140508
  3. LEVOFOLINATE [Suspect]
     Active Substance: LEVOLEUCOVORIN CALCIUM
     Indication: PANCREATIC CARCINOMA
     Dosage: INFUSION
     Route: 041
     Dates: start: 20140530, end: 20140530
  4. 5-FU [Suspect]
     Active Substance: FLUOROURACIL
     Indication: PANCREATIC CARCINOMA
     Route: 041
     Dates: start: 20140508, end: 20140508
  5. 5-FU [Suspect]
     Active Substance: FLUOROURACIL
     Indication: PANCREATIC CARCINOMA
     Route: 041
     Dates: start: 20150704, end: 20150704
  6. ELPLAT [Suspect]
     Active Substance: OXALIPLATIN
     Indication: PANCREATIC CARCINOMA
     Dosage: INFUSION
     Route: 041
     Dates: start: 20140613, end: 20140613
  7. CAMPTO [Suspect]
     Active Substance: IRINOTECAN
     Indication: PANCREATIC CARCINOMA
     Dosage: INFUSION
     Route: 041
     Dates: start: 20140508, end: 20140508
  8. ELPLAT [Suspect]
     Active Substance: OXALIPLATIN
     Indication: PANCREATIC CARCINOMA
     Dosage: INFUSION
     Route: 041
     Dates: start: 20140508, end: 20140508
  9. CAMPTO [Suspect]
     Active Substance: IRINOTECAN
     Indication: PANCREATIC CARCINOMA
     Dosage: INFUSION
     Route: 041
     Dates: start: 20140704, end: 20140704
  10. CAMPTO [Suspect]
     Active Substance: IRINOTECAN
     Indication: PANCREATIC CARCINOMA
     Dosage: INFUSION
     Route: 041
     Dates: start: 20140530, end: 20140530
  11. LEVOFOLINATE [Suspect]
     Active Substance: LEVOLEUCOVORIN CALCIUM
     Indication: PANCREATIC CARCINOMA
     Dosage: INFUSION
     Route: 041
     Dates: start: 20140613, end: 20140613
  12. 5-FU [Suspect]
     Active Substance: FLUOROURACIL
     Indication: PANCREATIC CARCINOMA
     Route: 041
     Dates: start: 20140613, end: 20140613
  13. ELPLAT [Suspect]
     Active Substance: OXALIPLATIN
     Indication: PANCREATIC CARCINOMA
     Dosage: INFUSION
     Route: 041
     Dates: start: 20140530, end: 20140530
  14. CAMPTO [Suspect]
     Active Substance: IRINOTECAN
     Indication: PANCREATIC CARCINOMA
     Dosage: INFUSION
     Route: 041
     Dates: start: 20140613, end: 20140613
  15. LEVOFOLINATE [Suspect]
     Active Substance: LEVOLEUCOVORIN CALCIUM
     Indication: PANCREATIC CARCINOMA
     Dosage: INFUSION
     Route: 041
     Dates: start: 20140704, end: 20140704
  16. 5-FU [Suspect]
     Active Substance: FLUOROURACIL
     Indication: PANCREATIC CARCINOMA
     Route: 041
     Dates: start: 20140530, end: 20140530

REACTIONS (8)
  - Fatigue [Not Recovered/Not Resolved]
  - White blood cell count decreased [Recovering/Resolving]
  - Nausea [Recovered/Resolved]
  - Neutrophil count decreased [Recovering/Resolving]
  - Stomatitis [Not Recovered/Not Resolved]
  - Peripheral sensory neuropathy [Not Recovered/Not Resolved]
  - Diabetes mellitus [Recovering/Resolving]
  - Decreased appetite [Recovering/Resolving]

NARRATIVE: CASE EVENT DATE: 20140525
